FAERS Safety Report 24106578 (Version 5)
Quarter: 2025Q3

REPORT INFORMATION
  Report Type: Spontaneous
  Country: US (occurrence: US)
  Receive Date: 20240717
  Receipt Date: 20250810
  Transmission Date: 20251020
  Serious: No
  Sender: ALEXION PHARMACEUTICALS
  Company Number: 2024A148418

PATIENT
  Sex: Female

DRUGS (3)
  1. BYDUREON BCISE [Suspect]
     Active Substance: EXENATIDE
     Dosage: 2 MILLIGRAM, QW
  2. BYDUREON BCISE [Suspect]
     Active Substance: EXENATIDE
  3. BYETTA [Suspect]
     Active Substance: EXENATIDE

REACTIONS (6)
  - Hypoacusis [Unknown]
  - Haemorrhage [Unknown]
  - Venous haemorrhage [Unknown]
  - Product storage error [Unknown]
  - Wrong technique in device usage process [Unknown]
  - Device leakage [Unknown]
